FAERS Safety Report 17330386 (Version 1)
Quarter: 2020Q1

REPORT INFORMATION
  Report Type: Spontaneous
  Country: US (occurrence: US)
  Receive Date: 20200110
  Receipt Date: 20200110
  Transmission Date: 20200409
  Serious: Yes (Hospitalization)
  Sender: FDA-Public Use
  Company Number: None

PATIENT
  Age: 33 Year
  Sex: Male

DRUGS (7)
  1. VITAMIN D2 50,000 [Concomitant]
  2. TOBI PODHALER [Suspect]
     Active Substance: TOBRAMYCIN
     Indication: CYSTIC FIBROSIS
     Route: 055
     Dates: start: 20180215
  3. CAYSTON [Concomitant]
     Active Substance: AZTREONAM
  4. SYMBICORT [Concomitant]
     Active Substance: BUDESONIDE\FORMOTEROL FUMARATE DIHYDRATE
  5. TRIKAFTA [Concomitant]
     Active Substance: ELEXACAFTOR\IVACAFTOR\TEZACAFTOR
  6. PULMOZYME [Suspect]
     Active Substance: DORNASE ALFA
  7. MVW MULTIVITAMIN CAPS COMPLETE FORMULATION [Concomitant]
     Active Substance: VITAMINS\ZINC

REACTIONS (3)
  - Pyrexia [None]
  - Cough [None]
  - Pulmonary function test decreased [None]

NARRATIVE: CASE EVENT DATE: 20200106
